FAERS Safety Report 19561104 (Version 1)
Quarter: 2021Q3

REPORT INFORMATION
  Report Type: Spontaneous
  Country: US (occurrence: US)
  Receive Date: 20210716
  Receipt Date: 20210716
  Transmission Date: 20211014
  Serious: No
  Sender: FDA-Public Use
  Company Number: US-JNJFOC-20210713136

PATIENT
  Sex: Male

DRUGS (1)
  1. MENS ROGAINE EXTRA STRENGTH [Suspect]
     Active Substance: MINOXIDIL
     Indication: ALOPECIA
     Dosage: AS DIRECTED (1 ML BY DROPPER) TWICE A DAY;
     Route: 061
     Dates: start: 202010

REACTIONS (2)
  - Drug ineffective [Unknown]
  - Application site dryness [Recovered/Resolved]
